FAERS Safety Report 10173942 (Version 3)
Quarter: 2014Q2

REPORT INFORMATION
  Report Type: Spontaneous
  Country: PT (occurrence: PT)
  Receive Date: 20140515
  Receipt Date: 20140610
  Transmission Date: 20141212
  Serious: Yes (Other)
  Sender: FDA-Public Use
  Company Number: PT-VERTEX PHARMACEUTICALS INC-2014-002314

PATIENT
  Age: 48 Year
  Sex: Male
  Weight: 77 kg

DRUGS (5)
  1. PEGASYS [Interacting]
     Indication: HEPATITIS C VIRUS TEST POSITIVE
     Dosage: DOSAGE FORM: SOLUTION FOR INJECTION, DOSE: 180 (UNIT UNSPECIFIED)
     Route: 065
     Dates: start: 20130403, end: 20130503
  2. NEORECORMON [Concomitant]
     Indication: PRODUCT USED FOR UNKNOWN INDICATION
     Dosage: DOSAGE FORM: SOLUTION FOR INJECTION, DOSE: 1 (UNIT UNSPECIFIED)
     Route: 058
     Dates: start: 20130306, end: 20130724
  3. PANTOPRAZOL [Concomitant]
     Indication: GASTRITIS
     Dosage: DOSAGE FORM: UNSPECIFIED
     Route: 048
     Dates: start: 2010
  4. INCIVO [Suspect]
     Indication: HEPATITIS C VIRUS TEST POSITIVE
     Dosage: 750 MG, TID
     Route: 048
     Dates: start: 20130403, end: 20130626
  5. COPEGUS [Interacting]
     Indication: HEPATITIS C VIRUS TEST POSITIVE
     Dosage: 800 MG, QD
     Route: 065
     Dates: start: 20130403, end: 20130503

REACTIONS (13)
  - Cough [Recovering/Resolving]
  - Myalgia [Recovering/Resolving]
  - Oropharyngeal discomfort [Recovering/Resolving]
  - Photophobia [Recovering/Resolving]
  - Rhinorrhoea [Recovering/Resolving]
  - Drug interaction [Unknown]
  - Aphthous stomatitis [Recovering/Resolving]
  - Scab [Recovering/Resolving]
  - Asthenia [Recovering/Resolving]
  - Rash [Recovering/Resolving]
  - Rash [Recovered/Resolved]
  - Rash [Recovered/Resolved]
  - Scab [Recovering/Resolving]
